FAERS Safety Report 8809376 (Version 2)
Quarter: 2012Q4

REPORT INFORMATION
  Report Type: 
  Country: US (occurrence: US)
  Receive Date: 20120926
  Receipt Date: 20121124
  Transmission Date: 20130627
  Serious: Yes (Hospitalization)
  Sender: FDA-Public Use
  Company Number: US-BAYER-2012-099823

PATIENT
  Age: 32 Year
  Sex: Female

DRUGS (7)
  1. YAZ [Suspect]
  2. TOPIRAMATE [Concomitant]
     Indication: MIGRAINE
     Dosage: 100 mg, UNK
     Route: 048
  3. PROTONIX [Concomitant]
     Dosage: 40 mg, UNK
     Route: 048
  4. CELEXA [Concomitant]
     Dosage: 20 mg, UNK
     Route: 048
  5. EFFEXOR [Concomitant]
  6. ATIVAN [Concomitant]
  7. PRILOSEC [Concomitant]
     Route: 048

REACTIONS (1)
  - Pulmonary embolism [None]
